FAERS Safety Report 16460052 (Version 1)
Quarter: 2019Q2

REPORT INFORMATION
  Report Type: Spontaneous
  Country: AR (occurrence: AR)
  Receive Date: 20190620
  Receipt Date: 20190620
  Transmission Date: 20190711
  Serious: Yes (Other)
  Sender: FDA-Public Use
  Company Number: AR-MYLANLABS-2017M1067150

PATIENT
  Age: 34 Year
  Sex: Female

DRUGS (1)
  1. LAPENAX [Suspect]
     Active Substance: CLOZAPINE
     Indication: PRODUCT USED FOR UNKNOWN INDICATION
     Dosage: 100 MG, QD
     Dates: start: 20171002

REACTIONS (2)
  - Anaemia [Not Recovered/Not Resolved]
  - Monocytopenia [Not Recovered/Not Resolved]

NARRATIVE: CASE EVENT DATE: 20171009
